FAERS Safety Report 5738475-8 (Version None)
Quarter: 2008Q2

REPORT INFORMATION
  Report Type: 
  Country: None (occurrence: None)
  Receive Date: 20080513
  Receipt Date: 20080429
  Transmission Date: 20081010
  Serious: No
  Sender: FDA-Public Use
  Company Number: 2008BI008761

PATIENT
  Age: 42 Year
  Sex: Female

DRUGS (12)
  1. TYSABRI [Suspect]
     Indication: MULTIPLE SCLEROSIS
     Dosage: 300 MG; QM; IV
     Route: 042
     Dates: start: 20070221, end: 20071101
  2. COLACE [Concomitant]
  3. CYMBALTA [Concomitant]
  4. EFFEXOR [Concomitant]
  5. FOSAMAX [Concomitant]
  6. NEURONTIN [Concomitant]
  7. BACLOFEN [Concomitant]
  8. AMANTADINE HCL [Concomitant]
  9. VITAMIN E [Concomitant]
  10. FOLIC ACID [Concomitant]
  11. VITAMIN D [Concomitant]
  12. DDAVP [Concomitant]

REACTIONS (5)
  - ASTHMA [None]
  - CATHETER THROMBOSIS [None]
  - CONDITION AGGRAVATED [None]
  - DEEP VEIN THROMBOSIS [None]
  - HYPERSENSITIVITY [None]
